FAERS Safety Report 6027090-7 (Version None)
Quarter: 2009Q1

REPORT INFORMATION
  Report Type: 
  Country: None (occurrence: None)
  Receive Date: 20090105
  Receipt Date: 20081222
  Transmission Date: 20090719
  Serious: Yes (Hospitalization, Other)
  Sender: FDA-Public Use
  Company Number: GB-ELI_LILLY_AND_COMPANY-GB200803005773

PATIENT
  Sex: Female

DRUGS (3)
  1. GEMZAR [Suspect]
     Indication: BREAST CANCER METASTATIC
     Dosage: UNK, UNKNOWN
     Route: 042
     Dates: start: 20071201
  2. PACLITAXEL [Concomitant]
     Indication: BREAST CANCER METASTATIC
     Dosage: UNK, UNKNOWN
     Route: 065
  3. LANSOPRAZOLE [Concomitant]
     Dosage: 30 MG, UNKNOWN
     Route: 048

REACTIONS (5)
  - CHEST DISCOMFORT [None]
  - COMPUTERISED TOMOGRAM ABNORMAL [None]
  - DRUG TOXICITY [None]
  - DYSPNOEA [None]
  - WHEEZING [None]
